FAERS Safety Report 5009241-6 (Version None)
Quarter: 2006Q2

REPORT INFORMATION
  Report Type: 
  Country: None (occurrence: None)
  Receive Date: 20060519
  Receipt Date: 20060508
  Transmission Date: 20061013
  Serious: Yes (Life-Threatening, Hospitalization)
  Sender: FDA-Public Use
  Company Number: 230009M06CAN

PATIENT
  Sex: Male

DRUGS (1)
  1. REBIF [Suspect]
     Dosage: SUBCUTANEOUS
     Route: 058
     Dates: start: 19980101

REACTIONS (3)
  - CARDIAC TAMPONADE [None]
  - MYOCARDIAL INFARCTION [None]
  - PERICARDITIS [None]
